FAERS Safety Report 7590831-1 (Version None)
Quarter: 2011Q3

REPORT INFORMATION
  Report Type: 
  Country: None (occurrence: None)
  Receive Date: 20110705
  Receipt Date: 20110622
  Transmission Date: 20111222
  Serious: Yes (Other)
  Sender: FDA-Public Use
  Company Number: PHHY2011JP55880

PATIENT
  Age: 26 Year
  Sex: Female

DRUGS (1)
  1. CYCLOSPORINE [Suspect]
     Indication: NEPHROTIC SYNDROME

REACTIONS (3)
  - POSTOPERATIVE ABSCESS [None]
  - LARGE INTESTINE PERFORATION [None]
  - NECROTISING FASCIITIS [None]
